FAERS Safety Report 6186087-7 (Version None)
Quarter: 2009Q2

REPORT INFORMATION
  Report Type: 
  Country: None (occurrence: None)
  Receive Date: 20090511
  Receipt Date: 20090504
  Transmission Date: 20091009
  Serious: Yes (Death, Hospitalization, Other)
  Sender: FDA-Public Use
  Company Number: IN-ROXANE LABORATORIES, INC.-2009-RO-00451RO

PATIENT
  Age: 30 Year
  Sex: Male

DRUGS (9)
  1. FLUCONAZOLE [Suspect]
     Indication: MALABSORPTION
  2. FLUCONAZOLE [Suspect]
     Indication: DISBACTERIOSIS
  3. FLUCONAZOLE [Suspect]
     Indication: OESOPHAGEAL CANDIDIASIS
  4. TETRACYCLINE [Suspect]
     Indication: MALABSORPTION
     Dosage: 1500MG
  5. TETRACYCLINE [Suspect]
     Indication: DISBACTERIOSIS
     Route: 048
  6. TETRACYCLINE [Suspect]
     Indication: OESOPHAGEAL CANDIDIASIS
  7. TPN [Suspect]
     Route: 051
  8. ALBUMIN (HUMAN) [Suspect]
  9. CEFTRIAXONE [Suspect]
     Route: 042

REACTIONS (6)
  - CARDIAC ARREST [None]
  - DRUG INEFFECTIVE [None]
  - HYPOGAMMAGLOBULINAEMIA [None]
  - MALNUTRITION [None]
  - SEPSIS [None]
  - STRONGYLOIDIASIS [None]
